FAERS Safety Report 23140956 (Version 1)
Quarter: 2023Q4

REPORT INFORMATION
  Report Type: Report from Study
  Country: US (occurrence: US)
  Receive Date: 20231103
  Receipt Date: 20231103
  Transmission Date: 20240109
  Serious: Yes (Other)
  Sender: FDA-Public Use
  Company Number: US-UCBSA-2023052065

PATIENT
  Age: 8 Year
  Sex: Male

DRUGS (1)
  1. FINTEPLA [Suspect]
     Active Substance: FENFLURAMINE
     Indication: Lennox-Gastaut syndrome
     Dosage: 3 MILLILITER, 2X/DAY (BID)
     Dates: start: 20231006, end: 20231020

REACTIONS (3)
  - Seizure [Recovered/Resolved]
  - Mood altered [Recovered/Resolved]
  - Screaming [Recovered/Resolved]

NARRATIVE: CASE EVENT DATE: 20231006
